FAERS Safety Report 6713956-9 (Version None)
Quarter: 2010Q2

REPORT INFORMATION
  Report Type: 
  Country: None (occurrence: None)
  Receive Date: 20100506
  Receipt Date: 20100504
  Transmission Date: 20101027
  Serious: Yes (Hospitalization, Other)
  Sender: FDA-Public Use
  Company Number: US-BRISTOL-MYERS SQUIBB COMPANY-15090517

PATIENT
  Age: 5 Decade
  Sex: Female

DRUGS (2)
  1. COUMADIN [Suspect]
  2. CYMBALTA [Concomitant]

REACTIONS (4)
  - AMNESIA [None]
  - BLOOD GLUCOSE DECREASED [None]
  - COMA [None]
  - TREMOR [None]
